FAERS Safety Report 16795800 (Version 1)
Quarter: 2019Q3

REPORT INFORMATION
  Report Type: Spontaneous
  Country: US (occurrence: US)
  Receive Date: 20190911
  Receipt Date: 20190911
  Transmission Date: 20191005
  Serious: Yes (Hospitalization, Other)
  Sender: FDA-Public Use
  Company Number: US-AMGEN-USASP2019145659

PATIENT
  Sex: Female

DRUGS (4)
  1. XGEVA [Suspect]
     Active Substance: DENOSUMAB
     Indication: FIBROUS DYSPLASIA OF JAW
     Dosage: 120 MILLIGRAM, QWK
     Route: 058
  2. VITAMIN D3 [Concomitant]
     Active Substance: CHOLECALCIFEROL
     Dosage: 1000 UNIT, QD
  3. XGEVA [Suspect]
     Active Substance: DENOSUMAB
     Dosage: 60 MILLIGRAM, QMO
     Route: 058
  4. CALCIUM CARBONATE. [Concomitant]
     Active Substance: CALCIUM CARBONATE
     Dosage: 500 MILLIGRAM

REACTIONS (3)
  - Hypocalcaemia [Unknown]
  - Off label use [Unknown]
  - Blood alkaline phosphatase increased [Unknown]
